FAERS Safety Report 16794564 (Version 1)
Quarter: 2019Q3

REPORT INFORMATION
  Report Type: Spontaneous
  Country: US (occurrence: US)
  Receive Date: 20190911
  Receipt Date: 20190911
  Transmission Date: 20191005
  Serious: No
  Sender: FDA-Public Use
  Company Number: US-ASTRAZENECA-2019SF20455

PATIENT
  Sex: Female

DRUGS (1)
  1. BYDUREON [Suspect]
     Active Substance: EXENATIDE
     Indication: DIABETES MELLITUS
     Route: 058
     Dates: start: 2016

REACTIONS (5)
  - Burning sensation [Unknown]
  - Device issue [Unknown]
  - Blood glucose increased [Unknown]
  - Intentional product misuse [Unknown]
  - Incorrect dose administered [Unknown]
